FAERS Safety Report 6096222-7 (Version None)
Quarter: 2009Q1

REPORT INFORMATION
  Report Type: 
  Country: None (occurrence: None)
  Receive Date: 20090227
  Receipt Date: 20081007
  Transmission Date: 20090719
  Serious: No
  Sender: FDA-Public Use
  Company Number: A0750796A

PATIENT
  Age: 17 Year
  Sex: Female

DRUGS (3)
  1. LAMICTAL [Suspect]
     Indication: BIPOLAR DISORDER
     Dosage: 25MG SINGLE DOSE
     Route: 048
     Dates: start: 20081006
  2. ZOLOFT [Concomitant]
  3. BUPROPION HCL [Concomitant]

REACTIONS (4)
  - HYPERSENSITIVITY [None]
  - RASH [None]
  - RASH MACULAR [None]
  - URTICARIA [None]
